FAERS Safety Report 9996275 (Version 1)
Quarter: 2014Q1

REPORT INFORMATION
  Report Type: Spontaneous
  Country: US (occurrence: None)
  Receive Date: 20140310
  Receipt Date: 20140310
  Transmission Date: 20141002
  Serious: Yes (Hospitalization)
  Sender: FDA-Public Use
  Company Number: None

PATIENT
  Age: 43 Year
  Sex: Male
  Weight: 96.77 kg

DRUGS (1)
  1. DOCETAXEL (TAXOTERE) [Suspect]

REACTIONS (1)
  - Device related infection [None]
